FAERS Safety Report 8066776-X (Version None)
Quarter: 2012Q1

REPORT INFORMATION
  Report Type: 
  Country: None (occurrence: None)
  Receive Date: 20120124
  Receipt Date: 20120116
  Transmission Date: 20120608
  Serious: Yes (Hospitalization)
  Sender: FDA-Public Use
  Company Number: US-BAYER-2011-042818

PATIENT
  Age: 22 Year
  Sex: Female
  Weight: 100 kg

DRUGS (9)
  1. IBUPROFEN (ADVIL) [Concomitant]
  2. SOMA [Concomitant]
     Dosage: 250 MG, QID
     Route: 048
  3. IMITREX [Concomitant]
     Dosage: 100 MG, UNK
  4. PROZAC [Concomitant]
     Indication: DEPRESSION
     Dosage: 20 MG, QD
     Route: 048
     Dates: start: 20071201, end: 20100701
  5. YAZ [Suspect]
     Indication: CONTRACEPTION
     Dosage: UNK
     Dates: start: 20081213, end: 20100401
  6. ONDANSETRON HCL [Concomitant]
     Indication: NAUSEA
     Dosage: 4 MG, PRN
     Route: 048
  7. ALBUTEROL [Concomitant]
  8. ASCORBIC ACID [Concomitant]
  9. ASMANEX TWISTHALER [Concomitant]
     Dosage: UNK
     Dates: start: 20080101

REACTIONS (7)
  - INJURY [None]
  - PAIN [None]
  - PAIN IN EXTREMITY [None]
  - DEEP VEIN THROMBOSIS [None]
  - EMOTIONAL DISTRESS [None]
  - ANXIETY [None]
  - OEDEMA PERIPHERAL [None]
